FAERS Safety Report 18932703 (Version 1)
Quarter: 2021Q1

REPORT INFORMATION
  Report Type: Spontaneous
  Country: US (occurrence: US)
  Receive Date: 20210223
  Receipt Date: 20210223
  Transmission Date: 20210420
  Serious: Yes (Other)
  Sender: FDA-Public Use
  Company Number: None

PATIENT
  Age: 24 Year
  Sex: Female
  Weight: 65.25 kg

DRUGS (5)
  1. TYLENOL 650MG30MIN PRIOR TO INFUSION [Concomitant]
  2. BENADRYL 25MG30MIN IVP PRIOR TO INFUSION [Concomitant]
  3. GAMUNEX?C [Suspect]
     Active Substance: HUMAN IMMUNOGLOBULIN G
     Indication: ILLNESS
     Dosage: ?          OTHER FREQUENCY:25GRAMSQ4WEEKS;?
     Route: 041
     Dates: start: 20200217
  4. GAMUNEX?C [Suspect]
     Active Substance: HUMAN IMMUNOGLOBULIN G
     Indication: MULTIPLE SCLEROSIS
     Dosage: ?          OTHER FREQUENCY:25GRAMS Q4WEEKS;?
     Route: 041
  5. GAMUNEX?C [Suspect]
     Active Substance: HUMAN IMMUNOGLOBULIN G
     Indication: MULTIPLE SCLEROSIS
     Dosage: ?          OTHER FREQUENCY:25GRAMSQ4WEEKS;?
     Route: 041
     Dates: start: 20200217

REACTIONS (2)
  - Urticaria [None]
  - Pruritus [None]

NARRATIVE: CASE EVENT DATE: 20210223
